FAERS Safety Report 6137231-9 (Version None)
Quarter: 2009Q1

REPORT INFORMATION
  Report Type: 
  Country: None (occurrence: None)
  Receive Date: 20090330
  Receipt Date: 20090325
  Transmission Date: 20090719
  Serious: Yes (Life-Threatening)
  Sender: FDA-Public Use
  Company Number: PHHY2009CA11203

PATIENT
  Sex: Female

DRUGS (4)
  1. FEMARA [Suspect]
     Indication: BREAST CANCER
     Dosage: 2.5 MG, QD
     Route: 048
     Dates: start: 20080315, end: 20080430
  2. ADVAIR HFA [Concomitant]
  3. SPIRIVA [Concomitant]
  4. SALBUTAMOL [Concomitant]

REACTIONS (1)
  - SUICIDE ATTEMPT [None]
